FAERS Safety Report 8318206-8 (Version None)
Quarter: 2012Q2

REPORT INFORMATION
  Report Type: 
  Country: None (occurrence: None)
  Receive Date: 20120427
  Receipt Date: 20120424
  Transmission Date: 20120825
  Serious: Yes (Hospitalization)
  Sender: FDA-Public Use
  Company Number: BE-ROCHE-1062963

PATIENT
  Sex: Male

DRUGS (2)
  1. MEDROL [Concomitant]
     Indication: PEMPHIGUS
     Dosage: 2 G/KG
  2. MYCOPHENOLATE MOFETIL (CELLCEPT) [Suspect]
     Indication: PEMPHIGUS

REACTIONS (1)
  - ACQUIRED HAEMOPHILIA [None]
